FAERS Safety Report 9681071 (Version 1)
Quarter: 2013Q4

REPORT INFORMATION
  Report Type: Spontaneous
  Country: US (occurrence: None)
  Receive Date: 20131108
  Receipt Date: 20131108
  Transmission Date: 20140711
  Serious: Yes (Disabling, Other)
  Sender: FDA-Public Use
  Company Number: None

PATIENT
  Age: 15 Year
  Sex: Female
  Weight: 99.79 kg

DRUGS (1)
  1. NEXPLANON [Suspect]

REACTIONS (4)
  - Anxiety [None]
  - Pain [None]
  - Stress [None]
  - Product quality issue [None]
